FAERS Safety Report 18540773 (Version 2)
Quarter: 2020Q4

REPORT INFORMATION
  Report Type: Spontaneous
  Country: US (occurrence: US)
  Receive Date: 20201124
  Receipt Date: 20201229
  Transmission Date: 20210114
  Serious: Yes (Other)
  Sender: FDA-Public Use
  Company Number: US-ASTRAZENECA-2020SF55125

PATIENT
  Age: 911 Month
  Sex: Female
  Weight: 74.4 kg

DRUGS (1)
  1. BYDUREON [Suspect]
     Active Substance: EXENATIDE
     Indication: DIABETES MELLITUS
     Route: 065

REACTIONS (19)
  - Memory impairment [Unknown]
  - Skin mass [Not Recovered/Not Resolved]
  - Wrong technique in device usage process [Unknown]
  - Feeling abnormal [Unknown]
  - Rash [Unknown]
  - Decreased appetite [Recovering/Resolving]
  - Herpes zoster [Unknown]
  - Incorrect dose administered by product [Unknown]
  - Contusion [Unknown]
  - Urinary tract infection [Unknown]
  - Dizziness [Unknown]
  - Aphasia [Unknown]
  - Illness [Recovering/Resolving]
  - Fatigue [Unknown]
  - Neuralgia [Not Recovered/Not Resolved]
  - Nausea [Recovering/Resolving]
  - Weight decreased [Unknown]
  - Injection site pain [Not Recovered/Not Resolved]
  - Injection site extravasation [Unknown]

NARRATIVE: CASE EVENT DATE: 202010
